FAERS Safety Report 11588877 (Version 1)
Quarter: 2015Q4

REPORT INFORMATION
  Report Type: Report from Study
  Country: US (occurrence: US)
  Receive Date: 20151002
  Receipt Date: 20151002
  Transmission Date: 20160304
  Serious: Yes (Hospitalization)
  Sender: FDA-Public Use
  Company Number: US-BIOGENIDEC-2015BI133125

PATIENT
  Age: 34 Year
  Sex: Female

DRUGS (10)
  1. CLARITIN [Concomitant]
     Active Substance: LORATADINE
  2. FENTANYL. [Concomitant]
     Active Substance: FENTANYL
  3. VOLTAREN [Concomitant]
     Active Substance: DICLOFENAC SODIUM
  4. SPRINTEC [Concomitant]
     Active Substance: ETHINYL ESTRADIOL\NORGESTIMATE
  5. METOPROLOL SUCCINATE ER [Concomitant]
     Active Substance: METOPROLOL SUCCINATE
  6. BACLOFEN. [Concomitant]
     Active Substance: BACLOFEN
  7. TECFIDERA [Suspect]
     Active Substance: DIMETHYL FUMARATE
     Indication: MULTIPLE SCLEROSIS
     Route: 048
     Dates: start: 20150313
  8. PERCOCET [Concomitant]
     Active Substance: ACETAMINOPHEN\OXYCODONE HYDROCHLORIDE
  9. FLOVENT HFA [Concomitant]
     Active Substance: FLUTICASONE PROPIONATE
  10. VALIUM [Concomitant]
     Active Substance: DIAZEPAM

REACTIONS (1)
  - Back pain [Unknown]

NARRATIVE: CASE EVENT DATE: 20150918
